FAERS Safety Report 9336813 (Version 2)
Quarter: 2013Q3

REPORT INFORMATION
  Report Type: Spontaneous
  Country: US (occurrence: US)
  Receive Date: 20130607
  Receipt Date: 20130730
  Transmission Date: 20140515
  Serious: Yes (Other)
  Sender: FDA-Public Use
  Company Number: US-BAYER-2013-067630

PATIENT
  Age: 32 Year
  Sex: Female
  Weight: 58.96 kg

DRUGS (4)
  1. MIRENA [Suspect]
     Indication: CONTRACEPTION
     Dosage: 20 MCG/24HR, CONT
     Route: 015
     Dates: start: 20130516, end: 20130523
  2. JOLIVETTE-28 [Concomitant]
     Indication: ORAL CONTRACEPTION
  3. ANCEF [Concomitant]
     Dosage: 1 MG, UNK
  4. CYTOTEC [Concomitant]
     Route: 067

REACTIONS (7)
  - Vaginal haemorrhage [None]
  - Embedded device [None]
  - Device dislocation [None]
  - Embedded device [None]
  - Abdominal pain lower [None]
  - Device difficult to use [None]
  - Device deployment issue [Recovered/Resolved]
